FAERS Safety Report 4909877-4 (Version None)
Quarter: 2006Q1

REPORT INFORMATION
  Report Type: 
  Country: None (occurrence: None)
  Receive Date: 20060208
  Receipt Date: 20060110
  Transmission Date: 20060701
  Serious: Yes (Hospitalization)
  Sender: FDA-Public Use
  Company Number: Q06-005

PATIENT
  Age: 62 Year
  Sex: Male
  Weight: 92.0802 kg

DRUGS (2)
  1. QUADRAMET [Suspect]
     Indication: PROSTATE CANCER
     Dosage: 92.3 MCI
     Dates: start: 20051201
  2. MORPHINE SULFATE [Concomitant]

REACTIONS (3)
  - ABDOMINAL PAIN [None]
  - OBSTRUCTION [None]
  - RENAL FAILURE [None]
